FAERS Safety Report 8816239 (Version 2)
Quarter: 2012Q4

REPORT INFORMATION
  Report Type: 
  Country: US (occurrence: US)
  Receive Date: 20120930
  Receipt Date: 20121022
  Transmission Date: 20130627
  Serious: No
  Sender: FDA-Public Use
  Company Number: US-009507513-1209USA002477

PATIENT
  Age: 3 Year
  Sex: Male

DRUGS (3)
  1. SINGULAIR [Suspect]
     Indication: ASTHMA
     Dosage: 4 mg, qd
     Route: 048
     Dates: start: 20120901, end: 20120902
  2. ZYRTEC [Concomitant]
     Dosage: as needed
  3. EPIPEN [Concomitant]
     Dosage: as needed

REACTIONS (2)
  - Hypersensitivity [Recovering/Resolving]
  - Eczema [Recovering/Resolving]
